FAERS Safety Report 9251749 (Version 1)
Quarter: 2013Q1

REPORT INFORMATION
  Report Type: Spontaneous
  Country: US (occurrence: None)
  Receive Date: 20130305
  Receipt Date: 20130305
  Transmission Date: 20140127
  Serious: Yes (Other)
  Sender: FDA-Public Use
  Company Number: 163-21880-12092659

PATIENT
  Sex: Male

DRUGS (2)
  1. REVLIMID [Suspect]
     Indication: PLASMA CELL MYELOMA
     Dosage: 5MG, 1 IN 1 D, PO
     Route: 048
     Dates: start: 20120822
  2. VELCADE (UNKNOWN) [Concomitant]
     Dosage: UNK

REACTIONS (2)
  - Glomerular filtration rate decreased [None]
  - Neuropathy peripheral [None]
